FAERS Safety Report 5360603-7 (Version None)
Quarter: 2007Q2

REPORT INFORMATION
  Report Type: 
  Country: None (occurrence: None)
  Receive Date: 20070618
  Receipt Date: 20070608
  Transmission Date: 20071010
  Serious: Yes (Hospitalization)
  Sender: FDA-Public Use
  Company Number: FR-BAYER-200710367BFR

PATIENT
  Age: 52 Year
  Sex: Male

DRUGS (4)
  1. NEXAVAR [Suspect]
     Indication: UNEVALUABLE EVENT
     Route: 048
     Dates: start: 20070511, end: 20070516
  2. NEXIUM [Concomitant]
     Indication: UNEVALUABLE EVENT
  3. LIORESAL [Concomitant]
     Indication: UNEVALUABLE EVENT
  4. SKENAN [Concomitant]
     Indication: UNEVALUABLE EVENT

REACTIONS (6)
  - CONFUSIONAL STATE [None]
  - CONSTIPATION [None]
  - DERMATITIS BULLOUS [None]
  - PALMAR-PLANTAR ERYTHRODYSAESTHESIA SYNDROME [None]
  - PRURITUS [None]
  - WEIGHT DECREASED [None]
